FAERS Safety Report 17938496 (Version 2)
Quarter: 2021Q2

REPORT INFORMATION
  Report Type: Spontaneous
  Country: CA (occurrence: CA)
  Receive Date: 20200624
  Receipt Date: 20210628
  Transmission Date: 20210717
  Serious: Yes (Other)
  Sender: FDA-Public Use
  Company Number: CA-TEVA-2020-CA-1792179

PATIENT
  Age: 46 Year
  Sex: Female

DRUGS (10)
  1. ZOLEDRONIC ACID [Suspect]
     Active Substance: ZOLEDRONIC ACID
     Indication: OSTEOPOROSIS
     Dosage: 5 MILLIGRAM DAILY;
     Route: 042
  2. ACETYLSALICYLIC ACID [Concomitant]
     Active Substance: ASPIRIN
  3. METHOTREXATE. [Concomitant]
     Active Substance: METHOTREXATE
  4. SILDENAFIL. [Concomitant]
     Active Substance: SILDENAFIL
  5. PREDNISONE. [Concomitant]
     Active Substance: PREDNISONE
  6. FOLIC ACID. [Concomitant]
     Active Substance: FOLIC ACID
  7. HYDROXYCHLOROQUINE [Concomitant]
     Active Substance: HYDROXYCHLOROQUINE
  8. ACYCLOVIR. [Concomitant]
     Active Substance: ACYCLOVIR
  9. FELODIPINE. [Concomitant]
     Active Substance: FELODIPINE
  10. VITAMIN D3 [Concomitant]
     Active Substance: CHOLECALCIFEROL

REACTIONS (9)
  - Fatigue [Unknown]
  - Pain [Unknown]
  - Arthralgia [Unknown]
  - Gait disturbance [Unknown]
  - Pyrexia [Unknown]
  - Concomitant disease aggravated [Unknown]
  - Chills [Unknown]
  - Decreased appetite [Unknown]
  - Systemic lupus erythematosus [Unknown]
